FAERS Safety Report 6958179-3 (Version None)
Quarter: 2010Q3

REPORT INFORMATION
  Report Type: 
  Country: None (occurrence: None)
  Receive Date: 20100831
  Receipt Date: 20100818
  Transmission Date: 20110219
  Serious: Yes (Other)
  Sender: FDA-Public Use
  Company Number: BR-PFIZER INC-2010103764

PATIENT
  Age: 77 Year
  Sex: Female
  Weight: 49 kg

DRUGS (4)
  1. LYRICA [Suspect]
     Indication: HYPOAESTHESIA
     Dosage: 150 MG, 1X/DAY
     Route: 048
     Dates: start: 20100716, end: 20100817
  2. DIAMICRON [Concomitant]
     Indication: DIABETES MELLITUS
     Dosage: UNK
  3. METFORMIN HYDROCHLORIDE [Concomitant]
     Indication: DIABETES MELLITUS
     Dosage: UNK
  4. CALCIUM W/COLECALCIFEROL [Concomitant]
     Dosage: UNK

REACTIONS (8)
  - BLOOD GLUCOSE INCREASED [None]
  - DECREASED APPETITE [None]
  - DIZZINESS [None]
  - DYSSTASIA [None]
  - FEELING DRUNK [None]
  - TREMOR [None]
  - URINE OUTPUT INCREASED [None]
  - VOMITING [None]
